FAERS Safety Report 19281701 (Version 1)
Quarter: 2021Q2

REPORT INFORMATION
  Report Type: Spontaneous
  Country: US (occurrence: US)
  Receive Date: 20210520
  Receipt Date: 20210520
  Transmission Date: 20210717
  Serious: No
  Sender: FDA-Public Use
  Company Number: US-ELI_LILLY_AND_COMPANY-US202105008485

PATIENT
  Sex: Female

DRUGS (1)
  1. BAMLANIVIMAB. [Suspect]
     Active Substance: BAMLANIVIMAB
     Indication: COVID-19
     Dosage: 700 MG, SINGLE
     Route: 042
     Dates: start: 20210218, end: 20210218

REACTIONS (13)
  - Dyspnoea [Recovered/Resolved]
  - Fatigue [Not Recovered/Not Resolved]
  - Dysphonia [Unknown]
  - Ageusia [Not Recovered/Not Resolved]
  - Feeling hot [Recovered/Resolved]
  - Decreased appetite [Recovered/Resolved]
  - Speech disorder [Recovering/Resolving]
  - Hyperhidrosis [Recovered/Resolved]
  - Weight decreased [Recovering/Resolving]
  - Headache [Recovered/Resolved]
  - COVID-19 [Unknown]
  - Decreased activity [Recovering/Resolving]
  - Sleep disorder [Recovering/Resolving]
